FAERS Safety Report 9205852 (Version 1)
Quarter: 2013Q2

REPORT INFORMATION
  Report Type: Spontaneous
  Country: TR (occurrence: TR)
  Receive Date: 20130403
  Receipt Date: 20130403
  Transmission Date: 20140414
  Serious: Yes (Death, Hospitalization)
  Sender: FDA-Public Use
  Company Number: TR-RANBAXY-2013US-67055

PATIENT
  Age: 45 Year
  Sex: Male

DRUGS (2)
  1. ATORVASTATIN [Suspect]
     Indication: HYPERCHOLESTEROLAEMIA
     Dosage: 10 MG/DAY
     Route: 065
  2. COLCHICINE [Interacting]
     Indication: AMYLOIDOSIS
     Dosage: 1.5 MG/DAY
     Route: 065

REACTIONS (3)
  - Rhabdomyolysis [Recovering/Resolving]
  - Drug interaction [Unknown]
  - Pneumonia [Fatal]
